FAERS Safety Report 8166699-1 (Version None)
Quarter: 2012Q1

REPORT INFORMATION
  Report Type: 
  Country: None (occurrence: None)
  Receive Date: 20120227
  Receipt Date: 20120217
  Transmission Date: 20120608
  Serious: Yes (Other)
  Sender: FDA-Public Use
  Company Number: JP-TEVA-324411ISR

PATIENT
  Age: 83 Year
  Sex: Female

DRUGS (12)
  1. OMEPRAZOLE [Concomitant]
  2. PAXIL [Concomitant]
  3. RIKKUNSHITO(GINSENG ROOT,ATRACTYLODES RHIZOME,PORIA SCLEROTIUM,RHIZOMA [Concomitant]
  4. MAGMITT [Concomitant]
  5. KOHAKUSANIN [Concomitant]
  6. MICROFILLIN [Concomitant]
  7. CEFTRIAXONE [Suspect]
     Route: 041
  8. EVOXAC [Concomitant]
  9. AMLODIPINE [Concomitant]
  10. BROTIZOLAN [Concomitant]
  11. KOBALNON [Concomitant]
  12. GASMOTIN [Concomitant]

REACTIONS (1)
  - DYSPNOEA [None]
